FAERS Safety Report 16330052 (Version 3)
Quarter: 2019Q3

REPORT INFORMATION
  Report Type: Report from Study
  Country: CA (occurrence: CA)
  Receive Date: 20190520
  Receipt Date: 20190831
  Transmission Date: 20191004
  Serious: Yes (Hospitalization, Other)
  Sender: FDA-Public Use
  Company Number: CA-BRISTOL-MYERS SQUIBB COMPANY-BMS-2017-047233

PATIENT
  Age: 39 Year
  Sex: Female

DRUGS (2)
  1. ABATACEPT [Suspect]
     Active Substance: ABATACEPT
     Indication: RHEUMATOID ARTHRITIS
     Dosage: 125 MG, QWK
     Route: 058
     Dates: start: 20170511
  2. ABATACEPT [Suspect]
     Active Substance: ABATACEPT
     Indication: PRODUCT USED FOR UNKNOWN INDICATION
     Dosage: 1000 MG, QWK
     Route: 042
     Dates: start: 20170511

REACTIONS (12)
  - Headache [Recovering/Resolving]
  - Nausea [Recovering/Resolving]
  - Needle issue [Unknown]
  - Viral infection [Unknown]
  - Endometrial disorder [Recovering/Resolving]
  - Fatigue [Recovering/Resolving]
  - Bronchospasm [Recovered/Resolved]
  - Lower respiratory tract infection [Recovered/Resolved]
  - Hypotension [Recovering/Resolving]
  - Adverse event [Unknown]
  - Injection site pain [Recovered/Resolved]
  - Hypertension [Not Recovered/Not Resolved]

NARRATIVE: CASE EVENT DATE: 20170629
